FAERS Safety Report 4758082-3 (Version None)
Quarter: 2005Q3

REPORT INFORMATION
  Report Type: 
  Country: None (occurrence: None)
  Receive Date: 20050829
  Receipt Date: 20050819
  Transmission Date: 20060218
  Serious: Yes (Other)
  Sender: FDA-Public Use
  Company Number: 2005118519

PATIENT
  Age: 72 Year
  Sex: Female

DRUGS (12)
  1. LYRICA [Suspect]
     Indication: NEUROPATHIC PAIN
     Dosage: 50 MG (25 MG, 2 IN 1 D), ORAL
     Route: 048
     Dates: start: 20050705, end: 20050707
  2. AMITRIPTYLINE HCL [Concomitant]
  3. DIGOXIN [Concomitant]
  4. FUROSEMIDE [Concomitant]
  5. ISOSORBIDE MONONITRATE [Concomitant]
  6. MIXTARD HUMAN 70/30 [Concomitant]
  7. ALBUTEROL SULFATE HFA [Concomitant]
  8. BECLOMETHASONE (BECLOMETASONE) [Concomitant]
  9. QUININE SULFATE [Concomitant]
  10. MOVICOL (MACROGOL, POTASSIUM CHLORIDE, SODIUM BICARBONATE, SODIUM CHLO [Concomitant]
  11. GTN (GLYCERYL TRINITRATE) [Concomitant]
  12. TEMAZEPAM [Concomitant]

REACTIONS (3)
  - DIARRHOEA [None]
  - RENAL IMPAIRMENT [None]
  - VOMITING [None]
